FAERS Safety Report 23334603 (Version 1)
Quarter: 2023Q4

REPORT INFORMATION
  Report Type: Other
  Country: US (occurrence: US)
  Receive Date: 20231224
  Receipt Date: 20231224
  Transmission Date: 20240109
  Serious: No
  Sender: FDA-Public Use
  Company Number: US-TRAVERE-2023TVT00640

PATIENT
  Age: 5 Year
  Sex: Male

DRUGS (4)
  1. CHOLBAM [Suspect]
     Active Substance: CHOLIC ACID
     Indication: Smith-Lemli-Opitz syndrome
     Route: 048
     Dates: start: 20230929
  2. GUANFACINE HYDROCHLORIDE [Concomitant]
     Active Substance: GUANFACINE HYDROCHLORIDE
  3. CYPROHEPTADINE HCL [Concomitant]
  4. FAMOTIDINE [Concomitant]
     Active Substance: FAMOTIDINE

REACTIONS (2)
  - Somnolence [Unknown]
  - Increased appetite [Unknown]
